FAERS Safety Report 4733480-2 (Version None)
Quarter: 2005Q3

REPORT INFORMATION
  Report Type: 
  Country: None (occurrence: None)
  Receive Date: 20050801
  Receipt Date: 20050721
  Transmission Date: 20060218
  Serious: Yes (Death, Hospitalization)
  Sender: FDA-Public Use
  Company Number: HQWYE772018MAY05

PATIENT
  Sex: Male

DRUGS (11)
  1. PANTOPRAZOLE SODIUM [Suspect]
     Dosage: 20 MG 1X PER 1 DAY, ORAL
     Route: 048
  2. ALLOPURINOL [Suspect]
     Dosage: 200 MG 1X PER 1 DAY, ORAL
     Route: 048
  3. BECLOMETHASONE DIPROPIONATE [Suspect]
  4. COVERSYL (PERINDOPRIL, ) [Suspect]
     Dosage: 4 MG 1X PER 1 DAY, ORAL
     Route: 048
  5. DIGOXIN [Suspect]
     Dosage: 250  MG 1X PER 1 DAY, ORAL
  6. FUROSEMIDE [Suspect]
     Dosage: 80 MG 1X PER 1 DAY, ORAL
     Route: 048
  7. ACETAMINOPHEN [Suspect]
     Dosage: ^SOME TIMES(S) SOME DF^
     Route: 048
  8. SIMVASTATIN [Suspect]
     Dosage: 40 MG 1X PER 1 DAY, ORAL
     Route: 048
  9. SPIRIVA [Suspect]
     Dosage: ^SOME TIME(S) SOME DF^
     Route: 055
  10. VENTOLIN [Suspect]
  11. WARFARIN SODIUM [Suspect]
     Dosage: ^SOME TIME (S) SOME DF^
     Route: 048

REACTIONS (1)
  - AORTIC DISSECTION [None]
